FAERS Safety Report 8446150-4 (Version None)
Quarter: 2012Q2

REPORT INFORMATION
  Report Type: 
  Country: None (occurrence: None)
  Receive Date: 20120618
  Receipt Date: 20120611
  Transmission Date: 20120825
  Serious: Yes (Other)
  Sender: FDA-Public Use
  Company Number: GB-PFIZER INC-2012139705

PATIENT
  Age: 30 Year
  Sex: Female
  Weight: 63 kg

DRUGS (4)
  1. PROCHLORPERAZINE [Suspect]
     Indication: METABOLIC DISORDER
  2. ONDANSETRON [Suspect]
     Indication: HYPEREMESIS GRAVIDARUM
     Route: 048
     Dates: start: 20120516, end: 20120522
  3. ONDANSETRON [Suspect]
     Indication: METABOLIC DISORDER
  4. PROCHLORPERAZINE [Suspect]
     Indication: HYPEREMESIS GRAVIDARUM
     Route: 002
     Dates: start: 20120517, end: 20120522

REACTIONS (4)
  - MOVEMENT DISORDER [None]
  - GRAND MAL CONVULSION [None]
  - CONVERSION DISORDER [None]
  - DEPRESSION [None]
